FAERS Safety Report 5394108-4 (Version None)
Quarter: 2007Q3

REPORT INFORMATION
  Report Type: 
  Country: None (occurrence: None)
  Receive Date: 20070720
  Receipt Date: 20070720
  Transmission Date: 20080115
  Serious: Yes (Hospitalization)
  Sender: FDA-Public Use
  Company Number: None

PATIENT
  Sex: Male
  Weight: 110 kg

DRUGS (2)
  1. FLUOROURACIL [Suspect]
     Dosage: 5600 MG
  2. ELOXATIN [Suspect]
     Dosage: 170 MG

REACTIONS (8)
  - BACTERIAL CULTURE POSITIVE [None]
  - CATHETER RELATED INFECTION [None]
  - HAEMOGLOBIN DECREASED [None]
  - NEUTROPHIL COUNT INCREASED [None]
  - PLATELET COUNT INCREASED [None]
  - PYREXIA [None]
  - STAPHYLOCOCCAL IDENTIFICATION TEST POSITIVE [None]
  - WHITE BLOOD CELL COUNT INCREASED [None]
